FAERS Safety Report 10168842 (Version 1)
Quarter: 2014Q2

REPORT INFORMATION
  Report Type: Spontaneous
  Country: US (occurrence: None)
  Receive Date: 20140509
  Receipt Date: 20140509
  Transmission Date: 20141212
  Serious: Yes (Hospitalization)
  Sender: FDA-Public Use
  Company Number: UTC-047344

PATIENT
  Age: 52 Year
  Sex: Female
  Weight: 83.9 kg

DRUGS (3)
  1. REMODULIN [Suspect]
     Indication: PULMONARY ARTERIAL HYPERTENSION
     Route: 058
     Dates: start: 20120806
  2. TYVASO [Suspect]
     Indication: COR PULMONALE CHRONIC
     Route: 055
     Dates: start: 20140219, end: 20140312
  3. TRACLEER (BOSENTAN) [Concomitant]

REACTIONS (2)
  - Pulmonary arterial hypertension [None]
  - Condition aggravated [None]
